FAERS Safety Report 24204566 (Version 4)
Quarter: 2024Q4

REPORT INFORMATION
  Report Type: Spontaneous
  Country: US (occurrence: US)
  Receive Date: 20240813
  Receipt Date: 20241231
  Transmission Date: 20250114
  Serious: No
  Sender: ROCHE
  Company Number: US-ROCHE-10000055551

PATIENT
  Sex: Female
  Weight: 68.04 kg

DRUGS (3)
  1. XOLAIR [Suspect]
     Active Substance: OMALIZUMAB
     Indication: Idiopathic urticaria
     Dosage: ONGOING
     Route: 058
     Dates: start: 202406, end: 20240802
  2. XOLAIR [Suspect]
     Active Substance: OMALIZUMAB
     Dosage: ONGOING
     Route: 058
     Dates: start: 202406
  3. ALLEGRA [BILASTINE] [Concomitant]
     Indication: Urticaria
     Route: 048

REACTIONS (2)
  - Off label use [Unknown]
  - COVID-19 [Recovered/Resolved]
